FAERS Safety Report 13482713 (Version 2)
Quarter: 2017Q2

REPORT INFORMATION
  Report Type: Report from Study
  Country: None (occurrence: US)
  Receive Date: 20170426
  Receipt Date: 20170630
  Transmission Date: 20170830
  Serious: Yes (Other)
  Sender: FDA-Public Use
  Company Number: US-ABBVIE-17K-163-1885809-00

PATIENT
  Age: 63 Year
  Sex: Male
  Weight: 77.63 kg

DRUGS (4)
  1. PREDNISONE. [Concomitant]
     Active Substance: PREDNISONE
     Indication: RHEUMATOID ARTHRITIS
  2. ARAVA [Concomitant]
     Active Substance: LEFLUNOMIDE
     Indication: RHEUMATOID ARTHRITIS
  3. HUMIRA [Suspect]
     Active Substance: ADALIMUMAB
     Indication: RHEUMATOID ARTHRITIS
     Route: 058
  4. HUMIRA [Suspect]
     Active Substance: ADALIMUMAB
     Route: 058

REACTIONS (7)
  - Venous thrombosis limb [Unknown]
  - Ophthalmic vein thrombosis [Unknown]
  - Haemoptysis [Recovering/Resolving]
  - Rheumatoid arthritis [Unknown]
  - Pulmonary embolism [Recovering/Resolving]
  - Localised infection [Unknown]
  - Viral infection [Unknown]

NARRATIVE: CASE EVENT DATE: 201612
